FAERS Safety Report 7517503-3 (Version None)
Quarter: 2011Q2

REPORT INFORMATION
  Report Type: 
  Country: None (occurrence: None)
  Receive Date: 20110601
  Receipt Date: 20110519
  Transmission Date: 20111010
  Serious: Yes (Other)
  Sender: FDA-Public Use
  Company Number: PHHY2011ES42920

PATIENT
  Age: 37 Year
  Sex: Female

DRUGS (10)
  1. TACROLIMUS [Concomitant]
  2. SULFAMETOXAZOL MED TRIMETOPRIM [Concomitant]
  3. OMEPRAZOLE [Concomitant]
  4. PREDNISONE [Concomitant]
  5. BISOPROLOL FUMARATE [Concomitant]
  6. AMLODIPINE BESYLATE [Concomitant]
  7. CALCITRIOL [Concomitant]
  8. VALGANCICLOVIR [Concomitant]
  9. MYFORTIC [Suspect]
     Indication: PROPHYLAXIS AGAINST TRANSPLANT REJECTION
     Dosage: 360 MG, BID
     Route: 048
     Dates: start: 20100904, end: 20110225
  10. IBANDRONATE SODIUM [Concomitant]

REACTIONS (2)
  - PROTEIN-LOSING GASTROENTEROPATHY [None]
  - APLASIA PURE RED CELL [None]
